FAERS Safety Report 4808736-5 (Version None)
Quarter: 2005Q4

REPORT INFORMATION
  Report Type: 
  Country: None (occurrence: None)
  Receive Date: 20051021
  Receipt Date: 20050720
  Transmission Date: 20060501
  Serious: No
  Sender: FDA-Public Use
  Company Number: US_0508120460

PATIENT
  Age: 79 Year
  Sex: 0

DRUGS (1)
  1. ZYPREXA [Suspect]
     Indication: DEMENTIA ALZHEIMER'S TYPE
     Dosage: 20 MG/1 DAY

REACTIONS (2)
  - DRUG LEVEL INCREASED [None]
  - UNEVALUABLE EVENT [None]
